FAERS Safety Report 5773217-1 (Version None)
Quarter: 2008Q2

REPORT INFORMATION
  Report Type: 
  Country: None (occurrence: None)
  Receive Date: 20080616
  Receipt Date: 20080611
  Transmission Date: 20081010
  Serious: Yes (Other)
  Sender: FDA-Public Use
  Company Number: TW-JNJFOC-20080603084

PATIENT
  Age: 65 Year
  Sex: Female

DRUGS (3)
  1. GALANTAMINE HYDROBROMIDE [Suspect]
     Indication: DEMENTIA ALZHEIMER'S TYPE
  2. VALPROIC ACID [Concomitant]
  3. SERTRALINE [Concomitant]

REACTIONS (1)
  - PLEUROTHOTONUS [None]
